FAERS Safety Report 19514706 (Version 2)
Quarter: 2021Q3

REPORT INFORMATION
  Report Type: Spontaneous
  Country: US (occurrence: US)
  Receive Date: 20210709
  Receipt Date: 20210723
  Transmission Date: 20211014
  Serious: No
  Sender: FDA-Public Use
  Company Number: US-ORGANON-O2107USA000256

PATIENT
  Sex: Female
  Weight: 131 kg

DRUGS (1)
  1. NEXPLANON [Suspect]
     Active Substance: ETONOGESTREL
     Dosage: 1 ROD IN LEFT ARM
     Route: 059
     Dates: start: 20180927, end: 20210701

REACTIONS (2)
  - Device breakage [Recovered/Resolved]
  - No adverse event [Unknown]
